FAERS Safety Report 9474611 (Version 1)
Quarter: 2013Q3

REPORT INFORMATION
  Report Type: Spontaneous
  Country: KZ (occurrence: KZ)
  Receive Date: 20130823
  Receipt Date: 20130823
  Transmission Date: 20140515
  Serious: Yes (Other)
  Sender: FDA-Public Use
  Company Number: KZ-VIIV HEALTHCARE LIMITED-B0917415A

PATIENT
  Age: 28 Year
  Sex: Female
  Weight: 60 kg

DRUGS (3)
  1. ZIAGEN [Suspect]
     Indication: HIV INFECTION
     Dosage: 600MG PER DAY
     Route: 065
     Dates: start: 20110708, end: 20110829
  2. ACICLOVIR [Concomitant]
     Indication: HIV INFECTION
     Dates: start: 20110708, end: 20120713
  3. STOCRIN [Concomitant]
     Indication: HIV INFECTION
     Dates: start: 20110708, end: 20120713

REACTIONS (1)
  - Dermatitis allergic [Recovered/Resolved]
